FAERS Safety Report 24803906 (Version 3)
Quarter: 2025Q2

REPORT INFORMATION
  Report Type: Spontaneous
  Country: US (occurrence: US)
  Receive Date: 20250103
  Receipt Date: 20250513
  Transmission Date: 20250717
  Serious: No
  Sender: SANOFI AVENTIS
  Company Number: US-SA-2025SA001566

PATIENT
  Age: 49 Year
  Sex: Male

DRUGS (2)
  1. DUPIXENT [Suspect]
     Active Substance: DUPILUMAB
     Indication: Dermatitis atopic
     Dates: start: 202303
  2. DUPIXENT [Suspect]
     Active Substance: DUPILUMAB
     Dosage: 300 MG, QOW
     Route: 058
     Dates: start: 20241227

REACTIONS (10)
  - Mental status changes [Unknown]
  - General physical condition abnormal [Unknown]
  - Food allergy [Recovering/Resolving]
  - Pruritus [Recovering/Resolving]
  - Swelling [Recovering/Resolving]
  - Skin discolouration [Unknown]
  - Injection site pain [Unknown]
  - Conjunctivitis [Unknown]
  - Eye pruritus [Unknown]
  - Dermatitis atopic [Unknown]

NARRATIVE: CASE EVENT DATE: 20241227
